FAERS Safety Report 9802858 (Version 1)
Quarter: 2014Q1

REPORT INFORMATION
  Report Type: Spontaneous
  Country: US (occurrence: None)
  Receive Date: 20140106
  Receipt Date: 20140106
  Transmission Date: 20141002
  Serious: Yes (Death, Hospitalization)
  Sender: FDA-Public Use
  Company Number: None

PATIENT
  Age: 71 Year
  Sex: Male
  Weight: 61.2 kg

DRUGS (2)
  1. PHENYTOIN [Suspect]
     Indication: CONVULSION
     Route: 048
     Dates: start: 20110705, end: 20130825
  2. PHENYTOIN [Suspect]
     Indication: SEPSIS
     Route: 048
     Dates: start: 20110705, end: 20130825

REACTIONS (14)
  - Pancytopenia [None]
  - Pain [None]
  - Fall [None]
  - General physical health deterioration [None]
  - Agitation [None]
  - Confusional state [None]
  - Urinary incontinence [None]
  - Dysarthria [None]
  - Incoherent [None]
  - Convulsion [None]
  - Blood pressure decreased [None]
  - Toxicity to various agents [None]
  - Respiratory depression [None]
  - Mobility decreased [None]
